FAERS Safety Report 6811236-4 (Version None)
Quarter: 2010Q2

REPORT INFORMATION
  Report Type: 
  Country: None (occurrence: None)
  Receive Date: 20100630
  Receipt Date: 20090914
  Transmission Date: 20101027
  Serious: No
  Sender: FDA-Public Use
  Company Number: US-AMGEN-KDL365179

PATIENT
  Sex: Female
  Weight: 67.6 kg

DRUGS (5)
  1. PROCRIT [Suspect]
     Indication: ANAEMIA
     Route: 058
     Dates: start: 20090408
  2. FERROUS SULFATE TAB [Concomitant]
  3. FOLIC ACID [Concomitant]
     Route: 048
  4. CITALOPRAM HYDROBROMIDE [Concomitant]
     Route: 048
  5. PEGINTERFERON ALFA-2B [Concomitant]

REACTIONS (2)
  - HOT FLUSH [None]
  - WEIGHT DECREASED [None]
